FAERS Safety Report 15663444 (Version 3)
Quarter: 2018Q4

REPORT INFORMATION
  Report Type: Spontaneous
  Country: US (occurrence: US)
  Receive Date: 20181128
  Receipt Date: 20181221
  Transmission Date: 20190205
  Serious: Yes (Hospitalization, Other)
  Sender: FDA-Public Use
  Company Number: US-AMGEN-USASP2018168183

PATIENT
  Age: 89 Year
  Sex: Female
  Weight: 62.3 kg

DRUGS (1)
  1. PROLIA [Suspect]
     Active Substance: DENOSUMAB
     Indication: OSTEOPOROSIS POSTMENOPAUSAL
     Dosage: 60 MG, Q6MO
     Route: 058

REACTIONS (3)
  - Product storage error [Unknown]
  - Ileus [Unknown]
  - Hernia [Unknown]

NARRATIVE: CASE EVENT DATE: 201811
